FAERS Safety Report 17952874 (Version 1)
Quarter: 2020Q2

REPORT INFORMATION
  Report Type: Report from Study
  Country: US (occurrence: US)
  Receive Date: 20200627
  Receipt Date: 20200627
  Transmission Date: 20200714
  Serious: No
  Sender: FDA-Public Use
  Company Number: NVSC2020US149490

PATIENT
  Sex: Female

DRUGS (1)
  1. EXTAVIA [Suspect]
     Active Substance: INTERFERON BETA-1B
     Indication: MULTIPLE SCLEROSIS
     Dosage: 0.25 ML EVERY 48 HOURS
     Route: 065

REACTIONS (5)
  - Injection site mass [Unknown]
  - Injection site discolouration [Unknown]
  - Expired device used [Unknown]
  - Injection site bruising [Unknown]
  - Medical device site injury [Unknown]
